FAERS Safety Report 12676544 (Version 1)
Quarter: 2016Q3

REPORT INFORMATION
  Report Type: Spontaneous
  Country: US (occurrence: None)
  Receive Date: 20160822
  Receipt Date: 20160822
  Transmission Date: 20161109
  Serious: Yes (Other)
  Sender: FDA-Public Use
  Company Number: None

PATIENT
  Age: 66 Year
  Sex: Female

DRUGS (2)
  1. LORATIDINE [Concomitant]
     Active Substance: LORATADINE
  2. OLOPATADINE [Suspect]
     Active Substance: OLOPATADINE
     Dates: start: 20160819, end: 20160819

REACTIONS (3)
  - Dyspnoea [None]
  - Flushing [None]
  - Arrhythmia [None]

NARRATIVE: CASE EVENT DATE: 20160819
